FAERS Safety Report 4506465-9 (Version None)
Quarter: 2004Q4

REPORT INFORMATION
  Report Type: 
  Country: None (occurrence: None)
  Receive Date: 20041122
  Receipt Date: 20041109
  Transmission Date: 20050328
  Serious: Yes (Other)
  Sender: FDA-Public Use
  Company Number: EMADSS2003003386

PATIENT
  Age: 47 Year
  Sex: Female

DRUGS (12)
  1. REMICADE [Suspect]
     Dosage: 3 DOSES
     Route: 041
  2. REMICADE [Suspect]
     Indication: RHEUMATOID ARTHRITIS
     Route: 041
  3. MELOXICAM [Suspect]
     Indication: RHEUMATOID ARTHRITIS
     Route: 065
  4. DOTHIEPIN HYDROCHLORIDE [Concomitant]
     Indication: DEPRESSION
     Route: 065
  5. FEMHRT [Concomitant]
     Route: 065
  6. FEMHRT [Concomitant]
     Route: 065
  7. LANSOPRAZOLE [Concomitant]
     Indication: DYSPEPSIA
     Route: 065
  8. DIHYDROCODEINE [Concomitant]
     Route: 065
  9. METFORMIN HCL [Concomitant]
     Route: 065
  10. METHOTREXATE [Concomitant]
     Route: 049
  11. CALICHEW [Concomitant]
  12. CALICHEW [Concomitant]
     Indication: OSTEOPOROSIS

REACTIONS (4)
  - AUTOIMMUNE HEPATITIS [None]
  - HEPATIC NECROSIS [None]
  - HEPATIC STEATOSIS [None]
  - HEPATITIS FULMINANT [None]
